FAERS Safety Report 9965262 (Version 1)
Quarter: 2014Q1

REPORT INFORMATION
  Report Type: Report from Study
  Country: US (occurrence: US)
  Receive Date: 20140305
  Receipt Date: 20140305
  Transmission Date: 20141002
  Serious: No
  Sender: FDA-Public Use
  Company Number: US-ABBVIE-13P-163-1127925-00

PATIENT
  Sex: Male

DRUGS (7)
  1. HUMIRA [Suspect]
     Indication: CROHN^S DISEASE
     Dates: start: 2011, end: 2012
  2. HUMIRA [Suspect]
     Dates: start: 20130707
  3. SINGULAIR [Concomitant]
     Indication: ASTHMA
  4. PROZAC [Concomitant]
     Indication: DEPRESSION
     Dates: start: 201301
  5. PROZAC [Concomitant]
     Indication: BIPOLAR DISORDER
  6. SEROQUEL [Concomitant]
     Indication: DEPRESSION
     Dosage: 100 MG DAILY
     Dates: start: 201301
  7. SEROQUEL [Concomitant]
     Indication: BIPOLAR DISORDER

REACTIONS (4)
  - Weight decreased [Unknown]
  - Decreased appetite [Unknown]
  - Abdominal pain [Unknown]
  - Anxiety [Unknown]
